FAERS Safety Report 9296285 (Version 1)
Quarter: 2013Q2

REPORT INFORMATION
  Report Type: Spontaneous
  Country: US (occurrence: US)
  Receive Date: 20130517
  Receipt Date: 20130517
  Transmission Date: 20140414
  Serious: Yes (Hospitalization)
  Sender: FDA-Public Use
  Company Number: US-ABBOTT-13P-163-1089211-00

PATIENT
  Sex: Male
  Weight: 115.77 kg

DRUGS (20)
  1. HUMIRA [Suspect]
     Indication: PSORIATIC ARTHROPATHY
     Dates: start: 201011, end: 201105
  2. STERALA [Concomitant]
     Indication: PSORIATIC ARTHROPATHY
  3. GABAPENTIN [Concomitant]
     Indication: NEUROPATHY PERIPHERAL
  4. FENOFIBRATE [Concomitant]
     Indication: BLOOD CHOLESTEROL
  5. IBUPROFEN [Concomitant]
     Indication: PRODUCT USED FOR UNKNOWN INDICATION
  6. LEVOTHYROXINE [Concomitant]
     Indication: THYROID DISORDER
  7. OXYCODONE [Concomitant]
     Indication: PAIN
  8. COVEX SPRAY [Concomitant]
     Indication: PRURITUS
  9. COVEX SPRAY [Concomitant]
     Indication: PROPHYLAXIS
  10. DEXAMETHASONE [Concomitant]
     Indication: PRODUCT USED FOR UNKNOWN INDICATION
  11. CALCIPOTRIENE [Concomitant]
     Indication: SKIN DISORDER
  12. ACETIC DROPS [Concomitant]
     Indication: EAR DISORDER
  13. DERMA SMOOTH [Concomitant]
     Indication: SKIN DISORDER
  14. ANDRODERM [Concomitant]
     Indication: ERECTILE DYSFUNCTION
     Route: 062
  15. MULTIVITAMIN [Concomitant]
     Indication: PRODUCT USED FOR UNKNOWN INDICATION
  16. VITAMIN C [Concomitant]
     Indication: PRODUCT USED FOR UNKNOWN INDICATION
  17. GLUCOSAMINE + CHONDROITIN [Concomitant]
     Indication: PRODUCT USED FOR UNKNOWN INDICATION
  18. BLUE GREEN ALGAE [Concomitant]
     Indication: IMMUNE SYSTEM DISORDER
  19. CALCIUM MAGNESIUM ZINC [Concomitant]
     Indication: PRODUCT USED FOR UNKNOWN INDICATION
  20. FLONASE [Concomitant]
     Indication: RESPIRATORY TRACT CONGESTION

REACTIONS (8)
  - Neuropathic arthropathy [Not Recovered/Not Resolved]
  - Foot fracture [Not Recovered/Not Resolved]
  - Arthritis infective [Recovering/Resolving]
  - Sleep apnoea syndrome [Unknown]
  - Diabetes mellitus [Not Recovered/Not Resolved]
  - Neuropathy peripheral [Not Recovered/Not Resolved]
  - Staphylococcal infection [Unknown]
  - Staphylococcal infection [Unknown]
